FAERS Safety Report 8572426-6 (Version None)
Quarter: 2012Q3

REPORT INFORMATION
  Report Type: 
  Country: None (occurrence: None)
  Receive Date: 20120806
  Receipt Date: 20120112
  Transmission Date: 20120928
  Serious: Yes (Hospitalization)
  Sender: FDA-Public Use
  Company Number: US-ROCHE-1087398

PATIENT
  Age: 46 Year
  Sex: Male

DRUGS (1)
  1. ACTIVASE [Suspect]
     Indication: PRODUCT USED FOR UNKNOWN INDICATION
     Route: 065

REACTIONS (3)
  - CHEST PAIN [None]
  - HYPERTENSION [None]
  - HYPOKALAEMIA [None]
